FAERS Safety Report 26032655 (Version 4)
Quarter: 2025Q4

REPORT INFORMATION
  Report Type: Spontaneous
  Country: US (occurrence: US)
  Receive Date: 20251112
  Receipt Date: 20251230
  Transmission Date: 20260118
  Serious: Yes (Hospitalization, Other)
  Sender: ROCHE
  Company Number: US-ROCHE-10000426420

PATIENT
  Age: 29 Year
  Sex: Female

DRUGS (14)
  1. XOLAIR [Suspect]
     Active Substance: OMALIZUMAB
     Indication: Urticaria
     Dosage: 300 MG/2 ML
     Route: 058
     Dates: start: 20240801
  2. XOLAIR [Suspect]
     Active Substance: OMALIZUMAB
     Route: 058
  3. XELJANZ XR [Concomitant]
     Active Substance: TOFACITINIB CITRATE
  4. Buprion XL [Concomitant]
  5. FEXOFENADINE [Concomitant]
     Active Substance: FEXOFENADINE HYDROCHLORIDE
  6. B12 [Concomitant]
  7. FAMOTIDINE [Concomitant]
     Active Substance: FAMOTIDINE
  8. TYLENOL [Concomitant]
     Active Substance: ACETAMINOPHEN
  9. EPINEPHRINE [Concomitant]
     Active Substance: EPINEPHRINE
  10. NEXPLANON [Concomitant]
     Active Substance: ETONOGESTREL
  11. MOTRIN [Concomitant]
     Active Substance: IBUPROFEN
  12. ONDANSETRON [Concomitant]
     Active Substance: ONDANSETRON
  13. PREDNISONE [Concomitant]
     Active Substance: PREDNISONE
  14. MOUNJARO [Concomitant]
     Active Substance: TIRZEPATIDE

REACTIONS (9)
  - Lip swelling [Unknown]
  - Swelling face [Unknown]
  - Off label use [Unknown]
  - Ankylosing spondylitis [Unknown]
  - Urticaria [Unknown]
  - Pharyngeal swelling [Unknown]
  - Angioedema [Unknown]
  - White blood cell count increased [Unknown]
  - Neutrophil count increased [Unknown]
